FAERS Safety Report 16480182 (Version 3)
Quarter: 2023Q2

REPORT INFORMATION
  Report Type: Spontaneous
  Country: US (occurrence: None)
  Receive Date: 20190626
  Receipt Date: 20230503
  Transmission Date: 20230722
  Serious: Yes (Other)
  Sender: FDA-Public Use
  Company Number: 2019SE92159

PATIENT
  Age: 24388 Day
  Sex: Male
  Weight: 102.1 kg

DRUGS (63)
  1. PRILOSEC [Suspect]
     Active Substance: OMEPRAZOLE MAGNESIUM
     Indication: Gastrooesophageal reflux disease
     Route: 048
     Dates: start: 19890101, end: 20151231
  2. PRILOSEC [Suspect]
     Active Substance: OMEPRAZOLE MAGNESIUM
     Indication: Gastrooesophageal reflux disease
     Route: 048
     Dates: start: 1989, end: 2000
  3. PRILOSEC [Suspect]
     Active Substance: OMEPRAZOLE MAGNESIUM
     Indication: Gastrooesophageal reflux disease
     Dosage: GENERIC
     Dates: start: 2015
  4. PRILOSEC [Suspect]
     Active Substance: OMEPRAZOLE MAGNESIUM
     Indication: Gastrooesophageal reflux disease
     Route: 048
     Dates: start: 20020925
  5. ESOMEPRAZOLE [Suspect]
     Active Substance: ESOMEPRAZOLE
     Dates: start: 20140926
  6. PREVACID [Suspect]
     Active Substance: LANSOPRAZOLE
     Indication: Gastrooesophageal reflux disease
     Dates: start: 19890101, end: 20151231
  7. PREVACID [Suspect]
     Active Substance: LANSOPRAZOLE
     Indication: Gastrooesophageal reflux disease
     Dates: start: 2001, end: 2015
  8. PREVACID [Suspect]
     Active Substance: LANSOPRAZOLE
     Indication: Gastrooesophageal reflux disease
     Dates: start: 20020201
  9. PREVACID [Suspect]
     Active Substance: LANSOPRAZOLE
     Indication: Gastrooesophageal reflux disease
     Dates: start: 20020201, end: 20020313
  10. PRAVASTATIN [Concomitant]
     Active Substance: PRAVASTATIN
     Indication: Blood cholesterol
     Dates: start: 2013, end: 2019
  11. PAROXETINE [Concomitant]
     Active Substance: PAROXETINE
     Indication: Depression
     Dates: start: 2014, end: 2019
  12. METFORMIN [Concomitant]
     Active Substance: METFORMIN HYDROCHLORIDE
     Indication: Diabetes mellitus
     Dates: start: 2016, end: 2019
  13. GLEMEPRIDE [Concomitant]
     Indication: Diabetes mellitus
     Dates: start: 2016, end: 2019
  14. NITROGLYCER [Concomitant]
     Indication: Chest pain
     Dates: start: 2016, end: 2019
  15. ASPIRIN [Concomitant]
     Active Substance: ASPIRIN
     Indication: Anticoagulant therapy
     Dates: start: 1998
  16. VITAMIN B6 [Concomitant]
     Active Substance: PYRIDOXINE HYDROCHLORIDE
     Indication: Asthenia
     Dates: start: 2019
  17. VITAMIN B12 [Concomitant]
     Active Substance: CYANOCOBALAMIN
     Indication: Asthenia
     Dates: start: 2019
  18. VITAMIN D3 [Concomitant]
     Active Substance: CHOLECALCIFEROL
     Indication: Asthenia
     Dates: start: 2019
  19. DIGITEK [Concomitant]
     Active Substance: DIGOXIN
  20. VIAGRA [Concomitant]
     Active Substance: SILDENAFIL CITRATE
  21. LIPITOR [Concomitant]
     Active Substance: ATORVASTATIN CALCIUM
  22. MUPIROCIN [Concomitant]
     Active Substance: MUPIROCIN
  23. FLUTICASONE [Concomitant]
     Active Substance: FLUTICASONE
  24. COLLAGENASE SANTYL [Concomitant]
     Active Substance: COLLAGENASE CLOSTRIDIUM HISTOLYTICUM
  25. SUCRALFATE [Concomitant]
     Active Substance: SUCRALFATE
  26. ZITHROMAX [Concomitant]
     Active Substance: AZITHROMYCIN DIHYDRATE
  27. FAMOTIDINE [Concomitant]
     Active Substance: FAMOTIDINE
  28. CEPHALEXIN [Concomitant]
     Active Substance: CEPHALEXIN
  29. ZETIA [Concomitant]
     Active Substance: EZETIMIBE
  30. SIMVASTATIN [Concomitant]
     Active Substance: SIMVASTATIN
  31. AMIODARONE [Concomitant]
     Active Substance: AMIODARONE
  32. DIAZEPAM [Concomitant]
     Active Substance: DIAZEPAM
  33. METROLOTION [Concomitant]
     Active Substance: METRONIDAZOLE
     Dates: start: 20050326
  34. GUAIFENESIN\PHENYLEPHRINE\PHENYLPROPANOLAMINE [Concomitant]
     Active Substance: GUAIFENESIN\PHENYLEPHRINE\PHENYLPROPANOLAMINE
     Dates: start: 20070803
  35. ONDANSETRON [Concomitant]
     Active Substance: ONDANSETRON
     Dates: start: 20070803
  36. MECLIZINE [Concomitant]
     Active Substance: MECLIZINE HYDROCHLORIDE
     Dates: start: 20070803
  37. NAPROXEN [Concomitant]
     Active Substance: NAPROXEN
     Dates: start: 20130614
  38. OFIRMEV [Concomitant]
     Active Substance: ACETAMINOPHEN
     Dates: start: 20140904
  39. VITAMINS [Concomitant]
     Active Substance: VITAMINS
     Dates: start: 20140904
  40. DULCOLAX NOS [Concomitant]
     Active Substance: BISACODYL OR DOCUSATE SODIUM
     Dates: start: 20140904
  41. FENOFIBRATE [Concomitant]
     Active Substance: FENOFIBRATE
     Dates: start: 20140904
  42. DONEPEZIL [Concomitant]
     Active Substance: DONEPEZIL
     Dates: start: 20140904
  43. TRULICITY [Concomitant]
     Active Substance: DULAGLUTIDE
     Dates: start: 20140904
  44. CASODEX [Concomitant]
     Active Substance: BICALUTAMIDE
     Dates: start: 20140904
  45. MELATONIN [Concomitant]
     Active Substance: MELATONIN
     Dates: start: 20140904
  46. TIZANIDINE [Concomitant]
     Active Substance: TIZANIDINE
     Dates: start: 20140904
  47. NIACIN [Concomitant]
     Active Substance: NIACIN
     Dates: start: 20140904
  48. ROSUVASTATIN [Concomitant]
     Active Substance: ROSUVASTATIN
     Dates: start: 20140904
  49. AMLODIPINE [Concomitant]
     Active Substance: AMLODIPINE BESYLATE
  50. CALCIUM [Concomitant]
     Active Substance: CALCIUM
  51. CYCLOBENZAPRINE [Concomitant]
     Active Substance: CYCLOBENZAPRINE
  52. FUROSEMIDE [Concomitant]
     Active Substance: FUROSEMIDE
  53. GABAPENTIN [Concomitant]
     Active Substance: GABAPENTIN
  54. LEVEMIR [Concomitant]
     Active Substance: INSULIN DETEMIR
  55. LOSARTAN [Concomitant]
     Active Substance: LOSARTAN
  56. PRAMIPEXOLE [Concomitant]
     Active Substance: PRAMIPEXOLE
  57. LANTUS [Concomitant]
     Active Substance: INSULIN GLARGINE
  58. OMEGA-3 ACIDS [Concomitant]
     Active Substance: OMEGA-3 FATTY ACIDS
  59. BYDUREON [Concomitant]
     Active Substance: EXENATIDE
  60. INSULIN NOS [Concomitant]
     Active Substance: INSULIN NOS
  61. VERSED [Concomitant]
     Active Substance: MIDAZOLAM HYDROCHLORIDE
  62. ASCORBATE CALCIUM [Concomitant]
  63. DOCUSATE CALCIUM [Concomitant]
     Active Substance: DOCUSATE CALCIUM

REACTIONS (3)
  - Chronic kidney disease [Not Recovered/Not Resolved]
  - Acute kidney injury [Unknown]
  - Renal failure [Unknown]

NARRATIVE: CASE EVENT DATE: 20140907
